FAERS Safety Report 15239832 (Version 1)
Quarter: 2018Q3

REPORT INFORMATION
  Report Type: Spontaneous
  Country: US (occurrence: US)
  Receive Date: 20180803
  Receipt Date: 20180803
  Transmission Date: 20181010
  Serious: No
  Sender: FDA-Public Use
  Company Number: US-ENDO PHARMACEUTICALS INC-2018-025965

PATIENT
  Sex: Female

DRUGS (5)
  1. PREDNISONE TABLETS [Suspect]
     Active Substance: PREDNISONE
     Indication: MYALGIA
     Dosage: 10 MG, OD
     Dates: end: 201802
  2. PREDNISONE TABLETS [Suspect]
     Active Substance: PREDNISONE
     Dosage: 5 MG, UNK
  3. PREDNISONE TABLETS [Suspect]
     Active Substance: PREDNISONE
     Dosage: 20 MG, OD FOR 3 DAYS
  4. ALLOPURINOL TABLETS [Concomitant]
     Active Substance: ALLOPURINOL
     Indication: GOUT
     Dosage: 300 MG, OD
  5. XELJANZ [Concomitant]
     Active Substance: TOFACITINIB CITRATE
     Indication: RHEUMATOID ARTHRITIS
     Dosage: 5 MG, BID
     Dates: start: 201710

REACTIONS (2)
  - Weight increased [Unknown]
  - Drug ineffective [Unknown]
